FAERS Safety Report 4897033-8 (Version None)
Quarter: 2006Q1

REPORT INFORMATION
  Report Type: 
  Country: None (occurrence: None)
  Receive Date: 20060127
  Receipt Date: 20060119
  Transmission Date: 20060701
  Serious: Yes (Other)
  Sender: FDA-Public Use
  Company Number: 2006010877

PATIENT
  Age: 55 Year
  Sex: Male

DRUGS (7)
  1. LUSTRAL (SERTRALINE) [Suspect]
     Indication: DEPRESSION
     Dosage: UNK (100 MG), ORAL
     Route: 048
     Dates: start: 20051205, end: 20051230
  2. ASPIRIN [Concomitant]
  3. RAMIPRIL [Concomitant]
  4. FINASTERIDE [Concomitant]
  5. SIMVASTATIN [Concomitant]
  6. HUMULIN I (INSULIN HUMAN INJECTION, ISOPHANE) [Concomitant]
  7. HUMULIN S (INSULIN HUMAN) [Concomitant]

REACTIONS (2)
  - BLINDNESS [None]
  - EYE HAEMORRHAGE [None]
